FAERS Safety Report 6697575-9 (Version None)
Quarter: 2010Q2

REPORT INFORMATION
  Report Type: 
  Country: None (occurrence: None)
  Receive Date: 20100426
  Receipt Date: 20090616
  Transmission Date: 20101027
  Serious: No
  Sender: FDA-Public Use
  Company Number: US-ABBOTT-09P-163-0580439-00

PATIENT
  Sex: Female
  Weight: 95.34 kg

DRUGS (9)
  1. AZMACORT [Suspect]
     Indication: ASTHMA
     Route: 055
     Dates: start: 20090501
  2. AZMACORT [Suspect]
     Indication: CHRONIC OBSTRUCTIVE PULMONARY DISEASE
  3. SPIRIVA [Concomitant]
     Indication: ASTHMA
     Route: 055
  4. SPIRIVA [Concomitant]
     Indication: CHRONIC OBSTRUCTIVE PULMONARY DISEASE
  5. LEVOTHROID [Concomitant]
     Indication: HYPOTHYROIDISM
     Route: 048
  6. BACLOFEN [Concomitant]
     Indication: MUSCLE RELAXANT THERAPY
     Dosage: UNSURE OF STRENGTH
     Route: 048
  7. TRICOR [Concomitant]
     Indication: BLOOD CHOLESTEROL INCREASED
     Dosage: UNSURE OF STRENGTH
     Route: 048
  8. HYDRODIURIL [Concomitant]
     Indication: DIURETIC THERAPY
     Dosage: UNSURE OF STRENGTH
     Route: 048
  9. UNKNOWN ARTHRITIS MEDICATION [Concomitant]
     Indication: ARTHRITIS
     Route: 048

REACTIONS (2)
  - DRUG INEFFECTIVE [None]
  - DYSPNOEA [None]
